FAERS Safety Report 11965777 (Version 1)
Quarter: 2016Q1

REPORT INFORMATION
  Report Type: Spontaneous
  Country: US (occurrence: US)
  Receive Date: 20160127
  Receipt Date: 20160127
  Transmission Date: 20160526
  Serious: Yes (Other)
  Sender: FDA-Public Use
  Company Number: US-PFIZER INC-2016034083

PATIENT
  Sex: Male

DRUGS (1)
  1. SUTENT [Suspect]
     Active Substance: SUNITINIB MALATE
     Indication: METASTATIC NEOPLASM
     Dosage: 50 MG, CYCLIC (D1-D26 Q6WEEKS)
     Route: 048
     Dates: start: 20150614

REACTIONS (4)
  - Diarrhoea [Unknown]
  - Blister [Unknown]
  - Oral mucosal blistering [Unknown]
  - Cough [Unknown]

NARRATIVE: CASE EVENT DATE: 20160120
